FAERS Safety Report 8016868-6 (Version None)
Quarter: 2012Q1

REPORT INFORMATION
  Report Type: 
  Country: None (occurrence: None)
  Receive Date: 20120102
  Receipt Date: 20111221
  Transmission Date: 20120608
  Serious: Yes (Disabling)
  Sender: FDA-Public Use
  Company Number: PHEH2006US15479

PATIENT
  Sex: Female
  Weight: 52.607 kg

DRUGS (4)
  1. GLEEVEC [Suspect]
     Indication: SARCOMA
     Dosage: 200 MG, QD
     Route: 048
     Dates: start: 20061001
  2. GLEEVEC [Suspect]
     Indication: CARCINOID TUMOUR OF THE GASTROINTESTINAL TRACT
     Dosage: 400 MG, QD
     Route: 048
     Dates: start: 20060101, end: 20060101
  3. GLEEVEC [Suspect]
     Dosage: 200 MG, DAILY
     Route: 048
     Dates: start: 20070813
  4. GLEEVEC [Suspect]
     Dosage: 200 MG, UNK
     Route: 048
     Dates: start: 20100319

REACTIONS (7)
  - INTERMITTENT CLAUDICATION [None]
  - ANXIETY [None]
  - PERIPHERAL ARTERIAL OCCLUSIVE DISEASE [None]
  - NASAL CONGESTION [None]
  - URTICARIA [None]
  - PLATELET COUNT INCREASED [None]
  - PANIC REACTION [None]
